FAERS Safety Report 5095511-2 (Version None)
Quarter: 2006Q3

REPORT INFORMATION
  Report Type: 
  Country: None (occurrence: None)
  Receive Date: 20060901
  Receipt Date: 20060901
  Transmission Date: 20061208
  Serious: No
  Sender: FDA-Public Use
  Company Number: None

PATIENT
  Sex: Female

DRUGS (1)
  1. FOSAMAX [Suspect]

REACTIONS (2)
  - OSTEONECROSIS [None]
  - TOOTH EXTRACTION [None]
